FAERS Safety Report 7480326-8 (Version None)
Quarter: 2011Q2

REPORT INFORMATION
  Report Type: 
  Country: None (occurrence: None)
  Receive Date: 20110512
  Receipt Date: 20110512
  Transmission Date: 20111010
  Serious: Yes (Hospitalization)
  Sender: FDA-Public Use
  Company Number: None

PATIENT
  Sex: Male
  Weight: 61.1 kg

DRUGS (5)
  1. BEVACIZUMAB (RHUMAB VEGF) [Suspect]
     Dosage: 610 MG
     Dates: end: 20110407
  2. IRINOTECAN HCL [Suspect]
     Dosage: 245 MG
     Dates: end: 20110505
  3. ASPIRIN [Concomitant]
  4. LEUCOVORIN CALCIUM [Suspect]
     Dosage: 655 MG
     Dates: end: 20110505
  5. FLUOROURACIL [Suspect]
     Dosage: 3720 MG
     Dates: end: 20110505

REACTIONS (2)
  - GASTRIC ULCER [None]
  - MUCOSAL INFLAMMATION [None]
